FAERS Safety Report 20868640 (Version 1)
Quarter: 2022Q2

REPORT INFORMATION
  Report Type: Spontaneous
  Country: CA (occurrence: CA)
  Receive Date: 20220524
  Receipt Date: 20220524
  Transmission Date: 20220721
  Serious: Yes (Death)
  Sender: FDA-Public Use
  Company Number: CA-PFIZER INC-2020129158

PATIENT
  Age: 65 Year
  Sex: Female

DRUGS (4)
  1. IBRANCE [Suspect]
     Active Substance: PALBOCICLIB
     Dosage: 125 MG, 1X/DAY (FOR 21DAYS IN A ROW THEN STOP FOR 7 DAYS)
     Dates: start: 20200319
  2. IBRANCE [Suspect]
     Active Substance: PALBOCICLIB
     Dosage: 75 MG, DAILY FOR 21 DAYS ON AND 7 DAYS OFF (OUT OF 28 DAY CYCLE)
     Route: 048
     Dates: start: 20200507
  3. IBRANCE [Suspect]
     Active Substance: PALBOCICLIB
     Dosage: 100 MG, DAILY FOR 21 DAYS ON AND 7 DAYS OFF (OUT OF 28 DAY CYCLE)
     Route: 048
  4. FASLODEX [Concomitant]
     Active Substance: FULVESTRANT
     Dosage: UNK

REACTIONS (6)
  - Death [Fatal]
  - Dizziness [Recovered/Resolved]
  - Visual impairment [Not Recovered/Not Resolved]
  - Head discomfort [Unknown]
  - Wheelchair user [Unknown]
  - Weight decreased [Unknown]

NARRATIVE: CASE EVENT DATE: 20200101
